FAERS Safety Report 21637845 (Version 1)
Quarter: 2022Q4

REPORT INFORMATION
  Report Type: Report from Study
  Country: US (occurrence: US)
  Receive Date: 20221124
  Receipt Date: 20221124
  Transmission Date: 20230113
  Serious: No
  Sender: FDA-Public Use
  Company Number: US-ABBVIE-19K-163-2726216-00

PATIENT
  Sex: Male

DRUGS (4)
  1. VENCLEXTA [Suspect]
     Active Substance: VENETOCLAX
     Indication: Myelodysplastic syndrome
     Dosage: TAKE 1 TABLET BY MOUTH WITH MEALS DAY 2 THEN 2 TABLET(S) BY MOUTH WITH MEALS THEREAFTER?FORM STRE...
     Route: 048
  2. VENCLEXTA [Suspect]
     Active Substance: VENETOCLAX
     Indication: Myelodysplastic syndrome
     Dosage: DAY 2 -TAKE 2 TABLET(S) BY MOUTH WITH MEALS,2 PO BID, 2 WEEKS ON , 2 WEEKS OFF?FORM STRENGTH: 100 MG
     Route: 048
  3. VENCLEXTA [Suspect]
     Active Substance: VENETOCLAX
     Indication: Myelodysplastic syndrome
     Dosage: TAKE 1 TABLET BY MOUTH EVERY DAY FOR 1 WEEK, THEN TAKE 2 TABLET(S) BY MOUTH EVERY  DAY FOR 1 WEEK...
     Route: 048
  4. VENCLEXTA [Suspect]
     Active Substance: VENETOCLAX
     Indication: Myelodysplastic syndrome
     Dosage: TAKE WITH A MEAL AND WATER AT THE SAME TIME EACH  DAY. HOLD OFF RAMP UP DOSING?FORM STRENGTH: 50 MG
     Route: 048

REACTIONS (1)
  - Off label use [Unknown]
